FAERS Safety Report 10888702 (Version 2)
Quarter: 2015Q1

REPORT INFORMATION
  Report Type: Spontaneous
  Country: CH (occurrence: CH)
  Receive Date: 20150305
  Receipt Date: 20150319
  Transmission Date: 20150721
  Serious: Yes (Other)
  Sender: FDA-Public Use
  Company Number: CH-TEVA-539615ISR

PATIENT
  Age: 17 Year
  Sex: Female

DRUGS (1)
  1. ESCITALOPRAM [Suspect]
     Active Substance: ESCITALOPRAM OXALATE
     Indication: DEPRESSION
     Dosage: 5 MILLIGRAM DAILY; ESCITALOPRAM MEPHA WAS DISCONTINUED AFTER ABOUT 1 WEEK
     Route: 048
     Dates: start: 20141126, end: 20141204

REACTIONS (10)
  - Fatigue [Recovered/Resolved]
  - Logorrhoea [Recovered/Resolved]
  - Insomnia [Recovered/Resolved]
  - Elevated mood [Recovered/Resolved]
  - Mania [Recovered/Resolved]
  - Feeling abnormal [Recovered/Resolved]
  - Tension [Recovered/Resolved]
  - Tremor [Recovered/Resolved]
  - Memory impairment [Recovered/Resolved]
  - Inappropriate affect [Recovered/Resolved]

NARRATIVE: CASE EVENT DATE: 201411
